FAERS Safety Report 14826905 (Version 2)
Quarter: 2018Q3

REPORT INFORMATION
  Report Type: Report from Study
  Country: US (occurrence: US)
  Receive Date: 20180430
  Receipt Date: 20180702
  Transmission Date: 20181010
  Serious: Yes (Other)
  Sender: FDA-Public Use
  Company Number: US-BEH-2018090129

PATIENT
  Age: 53 Year
  Sex: Female
  Weight: 92.63 kg

DRUGS (1)
  1. HIZENTRA [Suspect]
     Active Substance: HUMAN IMMUNOGLOBULIN G
     Indication: PRIMARY IMMUNODEFICIENCY SYNDROME
     Dosage: 10 G, QW
     Route: 058
     Dates: start: 20180424

REACTIONS (6)
  - Hot flush [Recovering/Resolving]
  - Asthenia [Recovering/Resolving]
  - Dizziness [Unknown]
  - Chills [Recovering/Resolving]
  - Syncope [Unknown]
  - Blood pressure increased [Unknown]

NARRATIVE: CASE EVENT DATE: 20180424
